FAERS Safety Report 24697541 (Version 1)
Quarter: 2024Q4

REPORT INFORMATION
  Report Type: Spontaneous
  Country: GB (occurrence: GB)
  Receive Date: 20241204
  Receipt Date: 20241204
  Transmission Date: 20250114
  Serious: Yes (Other)
  Sender: BAYER HEALTHCARE LLC
  Company Number: None

PATIENT
  Age: 12 Year
  Sex: Male
  Weight: 29 kg

DRUGS (5)
  1. LORATADINE [Suspect]
     Active Substance: LORATADINE
     Indication: Cough
     Dosage: 5 MG
     Dates: start: 20241031
  2. LORATADINE [Suspect]
     Active Substance: LORATADINE
     Indication: Cough
     Dosage: 10 MG, QD
     Dates: end: 20241118
  3. SOLIFENACIN [Concomitant]
     Active Substance: SOLIFENACIN
     Indication: Hypertonic bladder
     Dosage: UNK
     Dates: start: 20240725
  4. DESMOPRESSIN [Concomitant]
     Active Substance: DESMOPRESSIN
     Indication: Enuresis
     Dosage: UNK
     Dates: start: 20230901
  5. FLUTICASONE FUROATE [Concomitant]
     Active Substance: FLUTICASONE FUROATE
     Indication: Cough
     Dosage: UNK
     Dates: start: 20241029

REACTIONS (4)
  - Medication error [Unknown]
  - Heart rate irregular [Unknown]
  - Chest pain [Unknown]
  - Feeling abnormal [None]

NARRATIVE: CASE EVENT DATE: 20241117
